FAERS Safety Report 15369950 (Version 2)
Quarter: 2018Q3

REPORT INFORMATION
  Report Type: Spontaneous
  Country: JP (occurrence: JP)
  Receive Date: 20180911
  Receipt Date: 20180913
  Transmission Date: 20181010
  Serious: Yes (Other)
  Sender: FDA-Public Use
  Company Number: JP-BAYER-2018-164889

PATIENT
  Sex: Male

DRUGS (4)
  1. STIVARGA [Suspect]
     Active Substance: REGORAFENIB
     Indication: GASTROINTESTINAL STROMAL TUMOUR
     Dosage: 120 MG, QD
     Route: 048
     Dates: start: 20150324, end: 20150420
  2. STIVARGA [Suspect]
     Active Substance: REGORAFENIB
     Indication: GASTROINTESTINAL STROMAL TUMOUR
     Dosage: DAILY DOSE 80 MG
     Route: 048
     Dates: start: 20150421, end: 20150609
  3. STIVARGA [Suspect]
     Active Substance: REGORAFENIB
     Indication: GASTROINTESTINAL STROMAL TUMOUR
     Dosage: UNK
     Route: 048
     Dates: start: 20171114
  4. STIVARGA [Suspect]
     Active Substance: REGORAFENIB
     Indication: GASTROINTESTINAL STROMAL TUMOUR
     Dosage: ADMINISTER 1?DAY ON / 1?DAYS OFF  DAILY DOSE 80 MG
     Route: 048
     Dates: start: 20150610

REACTIONS (8)
  - Palmar-plantar erythrodysaesthesia syndrome [None]
  - Inflammation [Recovering/Resolving]
  - Jaundice [None]
  - Cholangitis acute [None]
  - Hyperthermia [None]
  - Hepatic enzyme increased [Not Recovered/Not Resolved]
  - Liver abscess [None]
  - Malaise [None]

NARRATIVE: CASE EVENT DATE: 201504
